FAERS Safety Report 13352095 (Version 1)
Quarter: 2017Q1

REPORT INFORMATION
  Report Type: Spontaneous
  Country: US (occurrence: US)
  Receive Date: 20170320
  Receipt Date: 20170320
  Transmission Date: 20170429
  Serious: No
  Sender: FDA-Public Use
  Company Number: US-SA-2016SA113604

PATIENT
  Sex: Female

DRUGS (2)
  1. NASACORT ALLERGY 24HR [Suspect]
     Active Substance: TRIAMCINOLONE ACETONIDE
     Route: 045
     Dates: start: 20160613
  2. NASACORT ALLERGY 24HR [Suspect]
     Active Substance: TRIAMCINOLONE ACETONIDE
     Dosage: 1 OR 2 SPRAYS IN EACH NOSTRIL
     Route: 045
     Dates: start: 20160612, end: 20160612

REACTIONS (7)
  - Extra dose administered [Unknown]
  - Nervousness [Unknown]
  - Agitation [Unknown]
  - Psychomotor hyperactivity [Unknown]
  - Claustrophobia [Unknown]
  - Insomnia [Unknown]
  - Drug ineffective [Unknown]
